FAERS Safety Report 5599518-8 (Version None)
Quarter: 2008Q1

REPORT INFORMATION
  Report Type: 
  Country: None (occurrence: None)
  Receive Date: 20080123
  Receipt Date: 20080115
  Transmission Date: 20080703
  Serious: Yes (Hospitalization)
  Sender: FDA-Public Use
  Company Number: US-JNJFOC-20080104083

PATIENT
  Sex: Female

DRUGS (5)
  1. FENTANYL TRANSDERMAL SYSTEM [Suspect]
     Route: 062
  2. FENTANYL TRANSDERMAL SYSTEM [Suspect]
     Indication: BACK PAIN
     Route: 062
  3. VICODIN [Concomitant]
     Indication: BACK PAIN
     Route: 048
  4. BENICAR [Concomitant]
     Indication: HYPERTENSION
     Route: 048
  5. SALSALATE [Concomitant]
     Indication: PAIN
     Route: 048

REACTIONS (4)
  - APPENDICITIS [None]
  - ASTHENIA [None]
  - BACK PAIN [None]
  - SYNCOPE [None]
